FAERS Safety Report 23454302 (Version 1)
Quarter: 2024Q1

REPORT INFORMATION
  Report Type: Spontaneous
  Country: US (occurrence: None)
  Receive Date: 20240130
  Receipt Date: 20240130
  Transmission Date: 20240410
  Serious: No
  Sender: FDA-Public Use
  Company Number: 2024A021715

PATIENT
  Sex: Female

DRUGS (1)
  1. FARXIGA [Suspect]
     Active Substance: DAPAGLIFLOZIN PROPANEDIOL
     Dosage: 5.0MG UNKNOWN
     Route: 048

REACTIONS (6)
  - Gastrooesophageal reflux disease [Unknown]
  - Throat irritation [Unknown]
  - Dyspepsia [Unknown]
  - Glycosylated haemoglobin increased [Unknown]
  - Blood glucose abnormal [Unknown]
  - Intentional dose omission [Unknown]
